FAERS Safety Report 6691999-1 (Version None)
Quarter: 2010Q2

REPORT INFORMATION
  Report Type: 
  Country: None (occurrence: None)
  Receive Date: 20100422
  Receipt Date: 20100407
  Transmission Date: 20101027
  Serious: Yes (Hospitalization)
  Sender: FDA-Public Use
  Company Number: US-ROCHE-693615

PATIENT
  Sex: Male
  Weight: 86.6 kg

DRUGS (5)
  1. BEVACIZUMAB [Suspect]
     Indication: PROSTATE CANCER
     Dosage: FREQUENCY REPORTED: Q 3WEEKS X 8
     Route: 042
     Dates: start: 20090915, end: 20100216
  2. DOCETAXEL [Suspect]
     Indication: PROSTATE CANCER
     Dosage: FREQUENCY REPORTED: Q 3WEEKS X 4
     Route: 042
     Dates: start: 20090915, end: 20091117
  3. BICALUTAMIDE [Suspect]
     Indication: PROSTATE CANCER
     Route: 048
     Dates: start: 20091208
  4. TRIPTORELIN [Suspect]
     Indication: PROSTATE CANCER
     Dosage: DRUG : TRELSTAR INJECTION
     Route: 030
     Dates: start: 20090918
  5. TRIPTORELIN [Suspect]
     Route: 030
     Dates: start: 20091222

REACTIONS (4)
  - CHEST DISCOMFORT [None]
  - HEADACHE [None]
  - NODAL RHYTHM [None]
  - SKIN INFECTION [None]
